FAERS Safety Report 23904036 (Version 1)
Quarter: 2024Q2

REPORT INFORMATION
  Report Type: Spontaneous
  Country: AU (occurrence: AU)
  Receive Date: 20240527
  Receipt Date: 20240527
  Transmission Date: 20240716
  Serious: Yes (Death)
  Sender: FDA-Public Use
  Company Number: AU-SANDOZ-SDZ2024AU051612

PATIENT
  Age: 83 Year
  Sex: Female

DRUGS (3)
  1. FLUCLOXACILLIN [Suspect]
     Active Substance: FLUCLOXACILLIN
     Indication: Prophylaxis
     Dosage: 2 G, Q4H
     Route: 042
  2. GENTAMICIN [Suspect]
     Active Substance: GENTAMICIN
     Indication: Prophylaxis
     Dosage: 182 MG, AS A SINGLE DOSE
     Route: 042
  3. PIPERACILLIN AND TAZOBACTAM [Suspect]
     Active Substance: PIPERACILLIN SODIUM\TAZOBACTAM SODIUM
     Indication: Respiratory syncytial virus infection
     Dosage: UNK (4G-0.5G EVERY 6 HOURS)
     Route: 042

REACTIONS (2)
  - Candida infection [Fatal]
  - Bone marrow disorder [Fatal]
